FAERS Safety Report 8979935 (Version 1)
Quarter: 2012Q4

REPORT INFORMATION
  Report Type: 
  Country: US (occurrence: US)
  Receive Date: 20121221
  Receipt Date: 20121221
  Transmission Date: 20130627
  Serious: No
  Sender: FDA-Public Use
  Company Number: US-ASTRAZENECA-2007UW26987

PATIENT
  Age: 96 Year
  Sex: Female
  Weight: 55.3 kg

DRUGS (9)
  1. NEXIUM [Suspect]
     Indication: GASTROOESOPHAGEAL REFLUX DISEASE
     Route: 048
     Dates: start: 1998
  2. PRILOSEC [Suspect]
     Indication: GASTROOESOPHAGEAL REFLUX DISEASE
     Route: 048
     Dates: end: 1998
  3. SYNTHROID [Concomitant]
     Indication: THYROID DISORDER
     Route: 048
  4. VITAMINS [Concomitant]
  5. CALCIUM [Concomitant]
     Indication: MEDICAL DIET
     Dosage: DAILY
     Route: 048
  6. VITAMIN D [Concomitant]
     Indication: MEDICAL DIET
     Dosage: DAILY
     Route: 048
  7. THERAGRAN M [Concomitant]
     Indication: MEDICAL DIET
     Dosage: DAILY
     Route: 048
  8. TAGAMET [Concomitant]
  9. ZANTAC [Concomitant]

REACTIONS (7)
  - Dyspepsia [Unknown]
  - Photosensitivity reaction [Recovered/Resolved]
  - Rash [Recovered/Resolved]
  - Osteoporosis [Unknown]
  - Feeling abnormal [Unknown]
  - Asthenia [Unknown]
  - Drug hypersensitivity [Unknown]
